FAERS Safety Report 26103013 (Version 1)
Quarter: 2025Q4

REPORT INFORMATION
  Report Type: Spontaneous
  Country: US (occurrence: US)
  Receive Date: 20251129
  Receipt Date: 20251129
  Transmission Date: 20260118
  Serious: No
  Sender: SANOFI AVENTIS
  Company Number: US-SA-2025SA354615

PATIENT
  Age: 83 Year
  Sex: Female
  Weight: 68.09 kg

DRUGS (25)
  1. DUPIXENT [Suspect]
     Active Substance: DUPILUMAB
     Indication: Dermatitis atopic
     Dosage: 300 MG, QOW
     Route: 058
     Dates: start: 2025, end: 2025
  2. TRIAMCINOLONE ACETONIDE [Concomitant]
     Active Substance: TRIAMCINOLONE ACETONIDE
  3. TRESIBA [Concomitant]
     Active Substance: INSULIN DEGLUDEC
  4. TORSEMIDE [Concomitant]
     Active Substance: TORSEMIDE
  5. TACROLIMUS [Concomitant]
     Active Substance: TACROLIMUS
  6. SYSTANE (HYPROMELLOSE 2910 (4000 MPA.S)) [Concomitant]
     Active Substance: HYPROMELLOSE 2910 (4000 MPA.S)
  7. SIMVASTATIN [Concomitant]
     Active Substance: SIMVASTATIN
  8. SILVER SULFADIAZINE [Concomitant]
     Active Substance: SILVER SULFADIAZINE
  9. SERTRALINE HYDROCHLORIDE [Concomitant]
     Active Substance: SERTRALINE HYDROCHLORIDE
  10. IRBESARTAN [Concomitant]
     Active Substance: IRBESARTAN
  11. ONDANSETRON HYDROCHLORIDE [Concomitant]
     Active Substance: ONDANSETRON HYDROCHLORIDE
  12. TRADJENTA [Concomitant]
     Active Substance: LINAGLIPTIN
  13. ISOSORBIDE DINITRATE [Concomitant]
     Active Substance: ISOSORBIDE DINITRATE
  14. MAGNESIUM [Concomitant]
     Active Substance: MAGNESIUM
  15. GABAPENTIN [Concomitant]
     Active Substance: GABAPENTIN
  16. FLUOCINOLONE ACETONIDE [Concomitant]
     Active Substance: FLUOCINOLONE ACETONIDE
  17. FAMOTIDINE [Concomitant]
     Active Substance: FAMOTIDINE
  18. ESTRADIOL [Concomitant]
     Active Substance: ESTRADIOL
  19. ELIQUIS [Concomitant]
     Active Substance: APIXABAN
  20. DICLOFENAC SODIUM [Concomitant]
     Active Substance: DICLOFENAC SODIUM
  21. CHOLECALCIFEROL [Concomitant]
     Active Substance: CHOLECALCIFEROL
  22. CARVEDILOL [Concomitant]
     Active Substance: CARVEDILOL
  23. AMMONIUM LACTATE [Concomitant]
     Active Substance: AMMONIUM LACTATE
  24. AMLODIPINE BESYLATE [Concomitant]
     Active Substance: AMLODIPINE BESYLATE
  25. ALLOPURINOL [Concomitant]
     Active Substance: ALLOPURINOL

REACTIONS (2)
  - Neck pain [Unknown]
  - Eye infection [Unknown]

NARRATIVE: CASE EVENT DATE: 20250101
